FAERS Safety Report 5074688-9 (Version None)
Quarter: 2006Q3

REPORT INFORMATION
  Report Type: 
  Country: None (occurrence: None)
  Receive Date: 20060803
  Receipt Date: 20060717
  Transmission Date: 20061208
  Serious: Yes (Other)
  Sender: FDA-Public Use
  Company Number: US200605002321

PATIENT
  Age: 54 Year
  Sex: Female
  Weight: 92.1 kg

DRUGS (7)
  1. CYMBALTA [Suspect]
     Indication: DIABETIC NEUROPATHY
     Dosage: 60 MG, DAILY (1/D), ORAL
     Route: 048
     Dates: start: 20060104, end: 20060406
  2. LASIX [Concomitant]
  3. ALDACTONE [Concomitant]
  4. SYNTHROID [Concomitant]
  5. METFORMIN (METFORMIN) [Concomitant]
  6. GLIPIZIDE [Concomitant]
  7. COREG [Concomitant]

REACTIONS (4)
  - BRAIN NATRIURETIC PEPTIDE ABNORMAL [None]
  - CARDIAC FAILURE CONGESTIVE [None]
  - CONDITION AGGRAVATED [None]
  - VENTRICULAR HYPERTROPHY [None]
